FAERS Safety Report 10385593 (Version 1)
Quarter: 2014Q3

REPORT INFORMATION
  Report Type: Report from Study
  Country: ES (occurrence: ES)
  Receive Date: 20140814
  Receipt Date: 20140814
  Transmission Date: 20150326
  Serious: Yes (Hospitalization, Disabling)
  Sender: FDA-Public Use
  Company Number: ES-SA-2014SA105666

PATIENT
  Age: 46 Year
  Sex: Female

DRUGS (2)
  1. ESCITALOPRAM [Concomitant]
     Active Substance: ESCITALOPRAM OXALATE
     Indication: DEPRESSION
     Route: 048
  2. AUBAGIO [Suspect]
     Active Substance: TERIFLUNOMIDE
     Indication: MULTIPLE SCLEROSIS
     Route: 048
     Dates: start: 20140313, end: 20140709

REACTIONS (13)
  - Gastrointestinal disorder [Recovered/Resolved with Sequelae]
  - Asthenia [Recovered/Resolved with Sequelae]
  - Gait disturbance [Recovered/Resolved with Sequelae]
  - Abdominal pain [Unknown]
  - Depressed mood [Recovered/Resolved with Sequelae]
  - Neck pain [Recovered/Resolved with Sequelae]
  - Oral pain [Recovered/Resolved with Sequelae]
  - Decreased vibratory sense [Unknown]
  - Multiple sclerosis relapse [Recovered/Resolved with Sequelae]
  - Lymphocytosis [Recovered/Resolved with Sequelae]
  - Monoparesis [Recovered/Resolved with Sequelae]
  - Paraparesis [Recovered/Resolved with Sequelae]
  - Hypoaesthesia [Recovered/Resolved with Sequelae]

NARRATIVE: CASE EVENT DATE: 20140701
